FAERS Safety Report 5008640-6 (Version None)
Quarter: 2006Q2

REPORT INFORMATION
  Report Type: 
  Country: None (occurrence: None)
  Receive Date: 20060523
  Receipt Date: 20060221
  Transmission Date: 20061013
  Serious: Yes (Hospitalization)
  Sender: FDA-Public Use
  Company Number: US-GLAXOSMITHKLINE-A0594617A

PATIENT
  Age: 64 Year
  Sex: Female

DRUGS (5)
  1. WELLBUTRIN XL [Suspect]
     Indication: DEPRESSION
     Dosage: 3000MG SINGLE DOSE
     Route: 048
  2. UNSPECIFIED MEDICATION [Suspect]
  3. HYZAAR [Concomitant]
  4. SYNTHROID [Concomitant]
  5. ASPIRIN [Concomitant]

REACTIONS (3)
  - FEELING ABNORMAL [None]
  - GRAND MAL CONVULSION [None]
  - OVERDOSE [None]
